FAERS Safety Report 26076507 (Version 3)
Quarter: 2025Q4

REPORT INFORMATION
  Report Type: Report from Study
  Country: CA (occurrence: CA)
  Receive Date: 20251121
  Receipt Date: 20251229
  Transmission Date: 20260118
  Serious: Yes (Hospitalization, Other)
  Sender: PFIZER
  Company Number: CA-PFIZER INC-202500228335

PATIENT
  Age: 76 Year
  Sex: Male

DRUGS (2)
  1. IXIFI [Suspect]
     Active Substance: INFLIXIMAB-QBTX
     Indication: Psoriasis
     Dosage: 500 MG,EVERY 6 WEEKS
     Route: 042
     Dates: start: 20250721
  2. IXIFI [Suspect]
     Active Substance: INFLIXIMAB-QBTX
     Dosage: 500 MG,EVERY 6 WEEKS
     Route: 042
     Dates: start: 20251014

REACTIONS (2)
  - Hip fracture [Recovering/Resolving]
  - Immobile [Unknown]

NARRATIVE: CASE EVENT DATE: 20250101
